FAERS Safety Report 7308537-2 (Version None)
Quarter: 2011Q1

REPORT INFORMATION
  Report Type: 
  Country: None (occurrence: None)
  Receive Date: 20110223
  Receipt Date: 20110106
  Transmission Date: 20110831
  Serious: Yes (Hospitalization, Other)
  Sender: FDA-Public Use
  Company Number: US-BAYER-201023191NA

PATIENT
  Sex: Female
  Weight: 62.585 kg

DRUGS (3)
  1. VITAMINS NOS [Concomitant]
  2. YASMIN [Suspect]
     Indication: CONTRACEPTION
     Route: 048
     Dates: start: 20031101, end: 20080623
  3. YASMIN [Suspect]
     Indication: ACNE

REACTIONS (7)
  - HEADACHE [None]
  - PULMONARY EMBOLISM [None]
  - CHEST PAIN [None]
  - DYSPNOEA [None]
  - DYSPNOEA EXERTIONAL [None]
  - CHEST DISCOMFORT [None]
  - PARAESTHESIA [None]
